FAERS Safety Report 6397626-5 (Version None)
Quarter: 2009Q4

REPORT INFORMATION
  Report Type: 
  Country: None (occurrence: None)
  Receive Date: 20091012
  Receipt Date: 20091007
  Transmission Date: 20100525
  Serious: Yes (Death, Hospitalization)
  Sender: FDA-Public Use
  Company Number: ZA-GILEAD-2009-0024662

PATIENT
  Age: 34 Year
  Sex: Male
  Weight: 54.8 kg

DRUGS (4)
  1. TRUVADA [Suspect]
     Indication: HIV INFECTION
     Route: 048
     Dates: start: 20090622, end: 20090903
  2. STOCRIN [Suspect]
     Indication: HIV INFECTION
     Dates: start: 20090622, end: 20090903
  3. RIFAFOUR [Concomitant]
     Indication: PULMONARY TUBERCULOSIS
     Dates: start: 20090417
  4. VITAMIN B COMPLEX CAP [Concomitant]

REACTIONS (1)
  - PULMONARY TUBERCULOSIS [None]
